FAERS Safety Report 11616826 (Version 3)
Quarter: 2016Q3

REPORT INFORMATION
  Report Type: Spontaneous
  Country: US (occurrence: US)
  Receive Date: 20151009
  Receipt Date: 20160802
  Transmission Date: 20161109
  Serious: Yes (Other)
  Sender: FDA-Public Use
  Company Number: US-BAYER-2015-434883

PATIENT
  Sex: Female
  Weight: 152.38 kg

DRUGS (14)
  1. ROXICODONE [Concomitant]
     Active Substance: OXYCODONE HYDROCHLORIDE
     Indication: PAIN
  2. ROXICODONE [Concomitant]
     Active Substance: OXYCODONE HYDROCHLORIDE
     Indication: NERVE INJURY
  3. LEVAQUIN [Concomitant]
     Active Substance: LEVOFLOXACIN
     Indication: INFECTION
     Dosage: UNK
     Dates: start: 20020710
  4. AVELOX [Suspect]
     Active Substance: MOXIFLOXACIN HYDROCHLORIDE
     Indication: SINUSITIS
     Dosage: 400 MG, UNK
     Dates: start: 20050518
  5. COUMADIN [Concomitant]
     Active Substance: WARFARIN SODIUM
     Indication: ANXIETY
  6. ROXICODONE [Concomitant]
     Active Substance: OXYCODONE HYDROCHLORIDE
     Indication: RHEUMATOID ARTHRITIS
     Dosage: 30 MG, QID
     Dates: start: 2005
  7. COUMADIN [Concomitant]
     Active Substance: WARFARIN SODIUM
     Indication: DEPRESSION
     Dosage: UNK
     Dates: start: 2002, end: 2003
  8. LEVOTHYROXINE. [Concomitant]
     Active Substance: LEVOTHYROXINE
     Indication: THYROID DISORDER
  9. AVELOX [Suspect]
     Active Substance: MOXIFLOXACIN HYDROCHLORIDE
     Indication: SINUSITIS
     Dosage: UNK
     Dates: start: 200503
  10. LEVOTHYROXINE. [Concomitant]
     Active Substance: LEVOTHYROXINE
     Indication: HYPOTHYROIDISM
     Dosage: 175 ?G, QD
     Dates: start: 2001
  11. ROXICODONE [Concomitant]
     Active Substance: OXYCODONE HYDROCHLORIDE
     Indication: OSTEOPOROSIS
  12. XANAX [Concomitant]
     Active Substance: ALPRAZOLAM
     Indication: DEPRESSION
     Dosage: UNK
     Dates: start: 2005, end: 2008
  13. AVELOX [Suspect]
     Active Substance: MOXIFLOXACIN HYDROCHLORIDE
     Indication: SINUSITIS
     Dosage: 400 MG, UNK
     Dates: start: 20020323
  14. LEVAQUIN [Concomitant]
     Active Substance: LEVOFLOXACIN
     Indication: INFECTION
     Dosage: 500 MG, UNK
     Dates: start: 20020724

REACTIONS (9)
  - Musculoskeletal injury [None]
  - Mental disorder [None]
  - Nervous system disorder [None]
  - Anxiety [None]
  - Skin injury [None]
  - Musculoskeletal injury [None]
  - Stress [None]
  - Neuropathy peripheral [None]
  - Cardiovascular disorder [None]

NARRATIVE: CASE EVENT DATE: 2005
